FAERS Safety Report 18603106 (Version 1)
Quarter: 2020Q4

REPORT INFORMATION
  Report Type: Other
  Country: CA (occurrence: CA)
  Receive Date: 20201210
  Receipt Date: 20201210
  Transmission Date: 20210114
  Serious: Yes (Other)
  Sender: FDA-Public Use
  Company Number: CA-CELLTRION INC.-2020CA033285

PATIENT

DRUGS (18)
  1. LYRICA [Concomitant]
     Active Substance: PREGABALIN
     Dosage: 75 MG
     Route: 065
  2. ORENCIA [Concomitant]
     Active Substance: ABATACEPT
     Route: 042
  3. RISEDRONATE SODIUM. [Concomitant]
     Active Substance: RISEDRONATE SODIUM
  4. ESOMEPRAZOLE MAGNESIUM TRIHYDRATE;NAPROXEN [Concomitant]
     Active Substance: ESOMEPRAZOLE MAGNESIUM\NAPROXEN
     Dosage: 375 MG 2 EVERY 1 DAY
     Route: 065
  5. HYDROXYCHLOROQUINE SULFATE. [Concomitant]
     Active Substance: HYDROXYCHLOROQUINE SULFATE
     Dosage: 400 MG
     Route: 065
  6. NAPROXEN. [Concomitant]
     Active Substance: NAPROXEN
  7. ARTHROTEC [Suspect]
     Active Substance: DICLOFENAC SODIUM\MISOPROSTOL
  8. SULFASALAZINE. [Concomitant]
     Active Substance: SULFASALAZINE
  9. ARAVA [Concomitant]
     Active Substance: LEFLUNOMIDE
     Dosage: 30 MG
     Route: 065
  10. HYDROXYCHLOROQUINE SULFATE. [Concomitant]
     Active Substance: HYDROXYCHLOROQUINE SULFATE
     Dosage: UNK
  11. ARAVA [Concomitant]
     Active Substance: LEFLUNOMIDE
     Dosage: 20 MG
     Route: 065
  12. BACLOFEN. [Concomitant]
     Active Substance: BACLOFEN
  13. CELEBREX [Concomitant]
     Active Substance: CELECOXIB
  14. CYCLOBENZAPRINE. [Concomitant]
     Active Substance: CYCLOBENZAPRINE
  15. HYDROXYCHLOROQUINE SULFATE. [Concomitant]
     Active Substance: HYDROXYCHLOROQUINE SULFATE
     Dosage: 200 MG, 2 EVERY 1 DAY
     Route: 065
  16. RITUXIMAB (UNKNOWN) [Suspect]
     Active Substance: RITUXIMAB
     Indication: RHEUMATOID ARTHRITIS
     Dosage: 1000 MG
     Route: 042
  17. ACTEMRA [Suspect]
     Active Substance: TOCILIZUMAB
     Indication: RHEUMATOID ARTHRITIS
     Dosage: 162 MG 1 EVERY 1 WEEK
     Route: 058
  18. AMITRIPTYLINE [Concomitant]
     Active Substance: AMITRIPTYLINE

REACTIONS (24)
  - Drug ineffective [Unknown]
  - Oesophagitis [Unknown]
  - Pain [Unknown]
  - Inclusion body myositis [Unknown]
  - Joint stiffness [Unknown]
  - Pulmonary eosinophilia [Unknown]
  - Raynaud^s phenomenon [Unknown]
  - Muscular weakness [Unknown]
  - Eosinophilic granulomatosis with polyangiitis [Unknown]
  - Hypereosinophilic syndrome [Unknown]
  - Intervertebral disc degeneration [Unknown]
  - Arthralgia [Unknown]
  - Anaphylactic reaction [Unknown]
  - Lymphadenopathy [Unknown]
  - Allergic cough [Unknown]
  - Joint range of motion decreased [Unknown]
  - Somnolence [Unknown]
  - Osteoarthritis [Unknown]
  - Muscle spasms [Unknown]
  - Drug hypersensitivity [Unknown]
  - Platelet count decreased [Unknown]
  - Musculoskeletal stiffness [Unknown]
  - Lung infiltration [Unknown]
  - Rash [Unknown]
